FAERS Safety Report 11225971 (Version 3)
Quarter: 2015Q4

REPORT INFORMATION
  Report Type: Report from Study
  Country: JP (occurrence: JP)
  Receive Date: 20150629
  Receipt Date: 20151110
  Transmission Date: 20160304
  Serious: Yes (Hospitalization, Other)
  Sender: FDA-Public Use
  Company Number: JP-ASTELLAS-2015JP009026

PATIENT
  Age: 52 Year
  Sex: Female
  Weight: 53 kg

DRUGS (8)
  1. REBAMIPIDE [Concomitant]
     Active Substance: REBAMIPIDE
     Indication: GASTRITIS PROPHYLAXIS
     Route: 048
  2. REBAMIPIDE [Concomitant]
     Active Substance: REBAMIPIDE
     Indication: RADIUS FRACTURE
     Route: 048
     Dates: start: 20150529, end: 20150630
  3. CELECOX [Concomitant]
     Active Substance: CELECOXIB
     Indication: SCIATICA
     Route: 048
  4. LIMARMONE [Concomitant]
     Indication: SCIATICA
     Route: 048
  5. BETANIS [Suspect]
     Active Substance: MIRABEGRON
     Indication: HYPERTONIC BLADDER
     Route: 048
     Dates: start: 20120117, end: 20150121
  6. SUMILU [Concomitant]
     Active Substance: FELBINAC
     Indication: SCIATICA
     Dosage: ADEQUATE DOSE, AS NEEDED
     Route: 061
  7. VESICARE [Suspect]
     Active Substance: SOLIFENACIN SUCCINATE
     Indication: HYPERTONIC BLADDER
     Route: 048
     Dates: start: 20150205
  8. MIRABEGRON [Suspect]
     Active Substance: MIRABEGRON
     Indication: HYPERTONIC BLADDER
     Route: 048
     Dates: start: 20150122

REACTIONS (2)
  - Radius fracture [Recovering/Resolving]
  - Hypertension [Not Recovered/Not Resolved]

NARRATIVE: CASE EVENT DATE: 20150301
